FAERS Safety Report 19248412 (Version 1)
Quarter: 2021Q2

REPORT INFORMATION
  Report Type: Spontaneous
  Country: CN (occurrence: CN)
  Receive Date: 20210512
  Receipt Date: 20210512
  Transmission Date: 20210717
  Serious: Yes (Other)
  Sender: FDA-Public Use
  Company Number: CN-SLATE RUN PHARMACEUTICALS-21CN000484

PATIENT

DRUGS (5)
  1. SALINE [SODIUM CHLORIDE] [Suspect]
     Active Substance: SODIUM CHLORIDE
     Indication: HYPERCALCAEMIA
     Dosage: 4?5 LITRE, QD
     Route: 042
     Dates: start: 2019
  2. CINACALCET HYDROCHLORIDE. [Suspect]
     Active Substance: CINACALCET HYDROCHLORIDE
     Indication: HYPERCALCAEMIA
     Dosage: 50 MILLIGRAM, QD
     Route: 048
     Dates: start: 2019
  3. CALCITONIN SALMON. [Suspect]
     Active Substance: CALCITONIN SALMON
     Indication: HYPERCALCAEMIA
     Dosage: 200 INTERNATIONAL UNIT, Q 6 HR
     Route: 030
     Dates: start: 2019
  4. ZOLEDRONIC ACID [Suspect]
     Active Substance: ZOLEDRONIC ACID
     Indication: HYPERCALCAEMIA
     Dosage: 4 MILLIGRAM, 3 ONLY (ONE EVERY 2 WEEKS)
     Route: 042
     Dates: start: 2019
  5. FUROSEMIDE. [Suspect]
     Active Substance: FUROSEMIDE
     Indication: HYPERCALCAEMIA
     Dosage: 20?40 MILLIGRAM, QD
     Route: 042
     Dates: start: 2019

REACTIONS (10)
  - Muscular weakness [Recovered/Resolved]
  - Chvostek^s sign [Recovered/Resolved]
  - Hypocalcaemia [Recovered/Resolved]
  - Off label use [Unknown]
  - Hungry bone syndrome [Recovered/Resolved]
  - Nausea [Recovered/Resolved]
  - Hypoaesthesia [Recovered/Resolved]
  - Vomiting [Recovered/Resolved]
  - Treatment failure [Recovered/Resolved]
  - Hypercalcaemia [Recovered/Resolved]

NARRATIVE: CASE EVENT DATE: 2019
